FAERS Safety Report 19757485 (Version 1)
Quarter: 2021Q3

REPORT INFORMATION
  Report Type: Report from Study
  Country: CA (occurrence: CA)
  Receive Date: 20210827
  Receipt Date: 20210827
  Transmission Date: 20211014
  Serious: Yes (Other)
  Sender: FDA-Public Use
  Company Number: CA-OTSUKA-2021_012367

PATIENT
  Sex: Female

DRUGS (1)
  1. CEDAZURIDINE AND DECITABINE [Suspect]
     Active Substance: CEDAZURIDINE\DECITABINE
     Indication: MYELODYSPLASTIC SYNDROME
     Dosage: UNK, QD 1?5 DAYS EVERY 28 DAY CYCLE)
     Route: 065
     Dates: start: 20201127

REACTIONS (3)
  - Transfusion [Unknown]
  - Therapy interrupted [Unknown]
  - Peripheral swelling [Recovering/Resolving]
